FAERS Safety Report 7250637-X (Version None)
Quarter: 2011Q1

REPORT INFORMATION
  Report Type: 
  Country: None (occurrence: None)
  Receive Date: 20110128
  Receipt Date: 20110119
  Transmission Date: 20110831
  Serious: Yes (Other)
  Sender: FDA-Public Use
  Company Number: US-JNJFOC-20101106335

PATIENT
  Sex: Female
  Weight: 90.72 kg

DRUGS (1)
  1. REMICADE [Suspect]
     Indication: CROHN'S DISEASE
     Dosage: TREATED FOR ABOUT 3 YEARS
     Route: 042

REACTIONS (4)
  - POLYARTHRITIS [None]
  - LUPUS-LIKE SYNDROME [None]
  - PSORIASIS [None]
  - CROHN'S DISEASE [None]
